FAERS Safety Report 14329839 (Version 4)
Quarter: 2018Q1

REPORT INFORMATION
  Report Type: Spontaneous
  Country: JP (occurrence: JP)
  Receive Date: 20171227
  Receipt Date: 20180202
  Transmission Date: 20180509
  Serious: Yes (Hospitalization)
  Sender: FDA-Public Use
  Company Number: JP-ABBVIE-17P-087-2204538-00

PATIENT
  Age: 46 Year
  Sex: Female

DRUGS (1)
  1. ADALIMUMAB [Suspect]
     Active Substance: ADALIMUMAB
     Indication: INFLAMMATION
     Route: 058
     Dates: start: 201310, end: 20170611

REACTIONS (4)
  - Pyrexia [Recovered/Resolved]
  - Crohn^s disease [Recovered/Resolved]
  - Anal fistula [Recovered/Resolved]
  - Breast cancer [Recovered/Resolved]

NARRATIVE: CASE EVENT DATE: 201404
